FAERS Safety Report 7505463-0 (Version None)
Quarter: 2011Q2

REPORT INFORMATION
  Report Type: 
  Country: None (occurrence: None)
  Receive Date: 20110526
  Receipt Date: 20110512
  Transmission Date: 20111010
  Serious: Yes (Other)
  Sender: FDA-Public Use
  Company Number: BR-SANOFI-AVENTIS-2011SA029702

PATIENT
  Sex: Female

DRUGS (6)
  1. CIPROFLOXACIN [Concomitant]
     Route: 042
     Dates: start: 20110512
  2. HIDANTAL [Concomitant]
     Indication: CONVULSION
     Route: 048
  3. PHENYTOIN [Interacting]
     Route: 042
     Dates: start: 20110512
  4. ALL OTHER THERAPEUTIC PRODUCTS [Concomitant]
     Route: 065
  5. ENOXAPARIN SODIUM [Suspect]
     Route: 042
     Dates: start: 20110512
  6. DIGESAN [Interacting]
     Route: 042
     Dates: start: 20110512

REACTIONS (3)
  - SOMNOLENCE [None]
  - LOSS OF CONSCIOUSNESS [None]
  - DRUG INTERACTION [None]
